FAERS Safety Report 8436770-5 (Version None)
Quarter: 2012Q2

REPORT INFORMATION
  Report Type: 
  Country: None (occurrence: None)
  Receive Date: 20120614
  Receipt Date: 20120612
  Transmission Date: 20120825
  Serious: Yes (Death)
  Sender: FDA-Public Use
  Company Number: BO-PFIZER INC-2012142624

PATIENT
  Age: 69 Year
  Sex: Male

DRUGS (1)
  1. NORVASC [Suspect]
     Dosage: 10 MG, 1X/DAY
     Route: 048
     Dates: start: 20060101

REACTIONS (1)
  - MYOCARDIAL INFARCTION [None]
